FAERS Safety Report 5950187-4 (Version None)
Quarter: 2008Q4

REPORT INFORMATION
  Report Type: 
  Country: None (occurrence: None)
  Receive Date: 20081112
  Receipt Date: 20081105
  Transmission Date: 20090506
  Serious: Yes (Life-Threatening, Congenital Anomaly)
  Sender: FDA-Public Use
  Company Number: A0679853A

PATIENT
  Sex: Male

DRUGS (5)
  1. PAXIL [Suspect]
     Indication: DRUG USE FOR UNKNOWN INDICATION
  2. ASPIRIN [Concomitant]
  3. GLYBURIDE [Concomitant]
     Dosage: 1.25MG PER DAY
     Dates: start: 20040301
  4. VITAMIN TAB [Concomitant]
  5. IRON [Concomitant]

REACTIONS (13)
  - ANXIETY [None]
  - ATRIAL SEPTAL DEFECT [None]
  - CONGENITAL ANOMALY [None]
  - CONGENITAL CARDIOVASCULAR ANOMALY [None]
  - CONGENITAL TRICUSPID VALVE ATRESIA [None]
  - DEFORMITY [None]
  - DRUG EXPOSURE DURING PREGNANCY [None]
  - HEART INJURY [None]
  - LUNG DISORDER [None]
  - PAIN [None]
  - PATENT DUCTUS ARTERIOSUS [None]
  - PULMONARY ARTERY STENOSIS CONGENITAL [None]
  - VENTRICULAR SEPTAL DEFECT [None]
